FAERS Safety Report 18516094 (Version 10)
Quarter: 2021Q1

REPORT INFORMATION
  Report Type: Report from Study
  Country: DE (occurrence: DE)
  Receive Date: 20201118
  Receipt Date: 20210315
  Transmission Date: 20210419
  Serious: Yes (Death, Hospitalization, Other)
  Sender: FDA-Public Use
  Company Number: DE-SA-2020SA325034

PATIENT
  Age: 80 Year
  Sex: Male
  Weight: 77.5 kg

DRUGS (19)
  1. BORTEZOMIB. [Suspect]
     Active Substance: BORTEZOMIB
     Indication: PLASMA CELL MYELOMA
     Dosage: 1.3 MG/M2, OTHER (DAYS 1, 4, 8, 11 AND DAYS 22, 25, 29, 32)
     Route: 058
  2. DEXAMETHASONE. [Suspect]
     Active Substance: DEXAMETHASONE
     Dosage: 20 MG, QW
     Route: 042
     Dates: start: 20180629, end: 20180629
  3. PANTOZOLE [Concomitant]
     Active Substance: PANTOPRAZOLE SODIUM
     Indication: PROPHYLAXIS
     Dosage: UNK
     Route: 048
     Dates: start: 20180528
  4. CLEXANE [Concomitant]
     Active Substance: ENOXAPARIN SODIUM
     Indication: PROPHYLAXIS
     Dosage: UNK
     Route: 048
     Dates: start: 20180629
  5. CAPROS [Concomitant]
     Dosage: UNK
     Route: 048
     Dates: start: 20180924
  6. MST [MORPHINE SULFATE] [Concomitant]
     Active Substance: MORPHINE SULFATE
     Dosage: UNK
     Route: 048
     Dates: start: 20180924
  7. LYRICA [Concomitant]
     Active Substance: PREGABALIN
     Dosage: UNK
     Route: 048
     Dates: start: 20180720
  8. ISATUXIMAB [Suspect]
     Active Substance: ISATUXIMAB
     Dosage: 10 MG/KG, QW
     Route: 042
     Dates: start: 20180629, end: 20180629
  9. BORTEZOMIB. [Suspect]
     Active Substance: BORTEZOMIB
     Dosage: 1.3 MG/M2, OTHER (DAYS 1, 4, 8, 11 AND DAYS 22, 25, 29, 32)
     Route: 058
     Dates: start: 20180629, end: 20180629
  10. DEXAMETHASONE. [Suspect]
     Active Substance: DEXAMETHASONE
     Indication: PLASMA CELL MYELOMA
     Dosage: 20 MG, QW
     Route: 048
     Dates: start: 20201106, end: 20201106
  11. TOREM [TORASEMIDE] [Concomitant]
     Active Substance: TORSEMIDE
     Dosage: UNK
     Route: 048
     Dates: start: 20180811
  12. ISATUXIMAB [Suspect]
     Active Substance: ISATUXIMAB
     Indication: PLASMA CELL MYELOMA
     Dosage: 10 MG/KG, QOW
     Route: 042
     Dates: start: 20201023, end: 20201023
  13. LENALIDOMIDE [Suspect]
     Active Substance: LENALIDOMIDE
     Dosage: 25 MG, QD
     Route: 048
     Dates: start: 20180630, end: 20180705
  14. MCP [Concomitant]
     Active Substance: METOCLOPRAMIDE HYDROCHLORIDE
     Indication: PROPHYLAXIS
     Dosage: UNK
     Route: 048
     Dates: start: 20180528
  15. LENALIDOMIDE [Suspect]
     Active Substance: LENALIDOMIDE
     Indication: PLASMA CELL MYELOMA
     Dosage: 20 MG, QD
     Route: 048
     Dates: start: 20201106, end: 20201112
  16. NOVALGIN (METAMIZOLE SODIUM) [Concomitant]
     Active Substance: METAMIZOLE SODIUM
     Dosage: UNK
     Route: 048
     Dates: start: 20180604
  17. ACICLOVIR [Concomitant]
     Active Substance: ACYCLOVIR
     Indication: PROPHYLAXIS
     Dosage: UNK
     Route: 048
     Dates: start: 20180824
  18. TRAMAL [Concomitant]
     Active Substance: TRAMADOL
     Dosage: UNK
     Route: 048
     Dates: start: 20180528
  19. TAMSULOSIN [Concomitant]
     Active Substance: TAMSULOSIN
     Indication: PROPHYLAXIS
     Dosage: UNK
     Route: 048
     Dates: start: 2016

REACTIONS (2)
  - Rectal adenocarcinoma [Fatal]
  - Adenocarcinoma of colon [Fatal]

NARRATIVE: CASE EVENT DATE: 20201112
